FAERS Safety Report 17574370 (Version 1)
Quarter: 2020Q1

REPORT INFORMATION
  Report Type: Spontaneous
  Country: IT (occurrence: IT)
  Receive Date: 20200324
  Receipt Date: 20200324
  Transmission Date: 20200409
  Serious: Yes (Hospitalization)
  Sender: FDA-Public Use
  Company Number: IT-AUROBINDO-AUR-APL-2020-014976

PATIENT
  Age: 63 Year
  Sex: Female
  Weight: 40 kg

DRUGS (2)
  1. PACLITAXEL. [Concomitant]
     Active Substance: PACLITAXEL
     Indication: OVARIAN NEOPLASM
     Dosage: 100 MILLIGRAM, TOTAL
     Route: 042
     Dates: start: 20200305
  2. CARBOPLATIN CONCENTRATE FOR SOLUTION FOR INFUSION [Suspect]
     Active Substance: CARBOPLATIN
     Indication: OVARIAN NEOPLASM
     Dosage: 160 MILLIGRAM, TOTAL
     Route: 042
     Dates: start: 20200305

REACTIONS (2)
  - Flushing [Recovered/Resolved]
  - Erythema [Recovered/Resolved]

NARRATIVE: CASE EVENT DATE: 20200305
